FAERS Safety Report 6974715-5 (Version None)
Quarter: 2010Q3

REPORT INFORMATION
  Report Type: 
  Country: None (occurrence: None)
  Receive Date: 20100824
  Receipt Date: 20100722
  Transmission Date: 20110219
  Serious: No
  Sender: FDA-Public Use
  Company Number: 312673

PATIENT
  Age: 64 Year
  Sex: Female

DRUGS (1)
  1. VICTOZA [Suspect]
     Indication: TYPE 2 DIABETES MELLITUS
     Dosage: UNK, SUBCUTANEOUS, UNK, SUBCUTANEOUS
     Route: 058

REACTIONS (6)
  - COLD SWEAT [None]
  - DIARRHOEA [None]
  - FEELING HOT [None]
  - INJECTION SITE MASS [None]
  - NAUSEA [None]
  - URTICARIA [None]
